FAERS Safety Report 12673981 (Version 3)
Quarter: 2016Q3

REPORT INFORMATION
  Report Type: Report from Study
  Country: IL (occurrence: IL)
  Receive Date: 20160822
  Receipt Date: 20160929
  Transmission Date: 20161109
  Serious: Yes (Life-Threatening, Hospitalization)
  Sender: FDA-Public Use
  Company Number: IL-PFIZER INC-2015400450

PATIENT
  Age: 69 Year
  Sex: Male
  Weight: 73 kg

DRUGS (44)
  1. HYDRALAZINE [Suspect]
     Active Substance: HYDRALAZINE HYDROCHLORIDE
     Indication: CARDIAC FAILURE CONGESTIVE
     Dosage: 10 MG, 3X/DAY
     Route: 048
     Dates: start: 20150713, end: 20151211
  2. HYDRALAZINE [Suspect]
     Active Substance: HYDRALAZINE HYDROCHLORIDE
     Dosage: 30 MG, 4X/DAY
     Route: 048
     Dates: start: 20160723, end: 20160723
  3. AMIODARONE HYDROCHLORIDE. [Concomitant]
     Active Substance: AMIODARONE HYDROCHLORIDE
     Indication: TACHYCARDIA
     Dosage: 300 MG, 2X/DAY
     Route: 048
     Dates: start: 20160106, end: 20160707
  4. VABEN [Concomitant]
     Active Substance: OXAZEPAM
     Indication: ANXIETY
     Dosage: 10 MG, AS NEEDED
     Route: 048
     Dates: start: 2000
  5. EUTHYROX [Concomitant]
     Active Substance: LEVOTHYROXINE SODIUM
     Indication: HYPOTHYROIDISM
     Dosage: 50 UG, WEEKLY
     Route: 048
     Dates: start: 201412
  6. TRITACE [Suspect]
     Active Substance: RAMIPRIL
     Indication: CARDIAC FAILURE CONGESTIVE
     Dosage: 2.5 MG, 2X/DAY
     Route: 048
     Dates: start: 20140730
  7. DIMITONE [Concomitant]
     Indication: CARDIAC FAILURE CONGESTIVE
     Dosage: 12.5 MG, 2 TABLETS 2X/DAY
     Route: 048
     Dates: start: 20101208
  8. AMIODARONE HYDROCHLORIDE. [Concomitant]
     Active Substance: AMIODARONE HYDROCHLORIDE
     Indication: VENTRICULAR ARRHYTHMIA
     Dosage: 200 MG, DAILY
     Route: 048
     Dates: start: 20160616
  9. ELTROXIN [Concomitant]
     Active Substance: LEVOTHYROXINE
     Indication: HYPOTHYROIDISM
     Dosage: 400 UG, WEEKLY
     Route: 048
     Dates: start: 201605
  10. FUSID /00032601/ [Concomitant]
     Indication: CARDIAC FAILURE CONGESTIVE
     Dosage: 40 MG, DAILY
     Route: 048
     Dates: start: 20160411, end: 20160712
  11. BLINDED PLACEBO [Suspect]
     Active Substance: INVESTIGATIONAL PRODUCT
     Indication: CARDIOVASCULAR DISORDER
     Dosage: EVERY 2 WEEKS
     Route: 058
     Dates: start: 20150114
  12. TRITACE [Suspect]
     Active Substance: RAMIPRIL
     Dosage: 2.5 MG, 2X/DAY
     Route: 048
     Dates: start: 20141203
  13. GLUCOMIN [Concomitant]
     Active Substance: METFORMIN HYDROCHLORIDE
     Indication: DIABETES MELLITUS
     Dosage: 850 MG, 1X/DAY
     Route: 048
     Dates: start: 20141112
  14. COLCHICINE. [Concomitant]
     Active Substance: COLCHICINE
     Indication: GOUT
     Dosage: 0.5 MG, AS NEEDED
     Route: 048
     Dates: start: 2000
  15. HYDRALAZINE [Suspect]
     Active Substance: HYDRALAZINE HYDROCHLORIDE
     Dosage: 10 MG, 3X/DAY
     Route: 048
     Dates: start: 20160715, end: 20160717
  16. FUSID /00032601/ [Concomitant]
     Dosage: 60 MG, 2X/DAY
     Route: 042
     Dates: start: 20160722, end: 20160724
  17. BLINDED BOCOCIZUMAB [Suspect]
     Active Substance: BOCOCIZUMAB
     Indication: CARDIOVASCULAR DISORDER
     Dosage: EVERY 2 WEEKS
     Route: 058
     Dates: start: 20150114
  18. BLINDED PF-04950615 [Suspect]
     Active Substance: BOCOCIZUMAB
     Indication: CARDIOVASCULAR DISORDER
     Dosage: EVERY 2 WEEKS
     Route: 058
     Dates: start: 20150114
  19. BLINDED PLACEBO [Suspect]
     Active Substance: INVESTIGATIONAL PRODUCT
     Indication: CARDIOVASCULAR DISORDER
     Dosage: EVERY 2 WEEKS
     Route: 058
     Dates: start: 20150114
  20. TRITACE [Suspect]
     Active Substance: RAMIPRIL
     Dosage: 5 MG, 2X/DAY
     Route: 048
     Dates: start: 20140730
  21. TRITACE [Suspect]
     Active Substance: RAMIPRIL
     Dosage: 1.25 MG, DAILY
     Route: 048
     Dates: start: 20160712, end: 20160715
  22. ASPIRIN. [Concomitant]
     Active Substance: ASPIRIN
     Indication: CORONARY ARTERY DISEASE
     Dosage: 100 MG, 1X/DAY
     Route: 048
     Dates: start: 1988
  23. EZETROL [Concomitant]
     Active Substance: EZETIMIBE
     Indication: HYPERLIPIDAEMIA
     Dosage: 10 MG, 1X/DAY
     Route: 048
     Dates: start: 20060102
  24. ALLORIL [Concomitant]
     Indication: GOUT
     Dosage: 100 MG, 1X/DAY
     Route: 048
     Dates: start: 1988
  25. FOLIC ACID. [Concomitant]
     Active Substance: FOLIC ACID
     Indication: VITAMIN SUPPLEMENTATION
     Dosage: 1 CUP, 1X/DAY
     Route: 048
     Dates: start: 2012
  26. FUSID /00032601/ [Concomitant]
     Dosage: 40 MG, DAILY
     Route: 048
     Dates: start: 20160714, end: 20160717
  27. BLINDED PF-04950615 [Suspect]
     Active Substance: BOCOCIZUMAB
     Indication: CARDIOVASCULAR DISORDER
     Dosage: EVERY 2 WEEKS
     Route: 058
     Dates: start: 20150114
  28. MONOCORD [Concomitant]
     Indication: CORONARY ARTERY DISEASE
     Dosage: 40 MG, 2X/DAY
     Route: 048
     Dates: start: 20060223
  29. NORLIP [Concomitant]
     Indication: HYPERLIPIDAEMIA
     Dosage: 200 MG, 1X/DAY
     Route: 048
     Dates: start: 1991, end: 20160712
  30. NORLIP [Concomitant]
     Indication: DYSLIPIDAEMIA
  31. HYDROQUININE [Concomitant]
     Indication: TACHYCARDIA
     Dosage: 300 MG, 2X/DAY
     Route: 048
     Dates: start: 20151118, end: 20151215
  32. HYDRALAZINE [Suspect]
     Active Substance: HYDRALAZINE HYDROCHLORIDE
     Dosage: 10 MG, 3X/DAY
     Route: 048
     Dates: start: 201512, end: 20151215
  33. CARVEDILOL. [Concomitant]
     Active Substance: CARVEDILOL
     Indication: CARDIAC FAILURE CONGESTIVE
     Dosage: 25 MG, 2X/DAY
     Route: 048
     Dates: start: 20101208, end: 20160722
  34. BLINDED BOCOCIZUMAB [Suspect]
     Active Substance: BOCOCIZUMAB
     Indication: CARDIOVASCULAR DISORDER
     Dosage: EVERY 2 WEEKS
     Route: 058
     Dates: start: 20150114
  35. HYDRALAZINE [Suspect]
     Active Substance: HYDRALAZINE HYDROCHLORIDE
     Dosage: 20 MG, 3X/DAY
     Route: 048
     Dates: start: 20160718, end: 20160721
  36. HYDRALAZINE [Suspect]
     Active Substance: HYDRALAZINE HYDROCHLORIDE
     Dosage: 30 MG, 3X/DAY
     Route: 048
     Dates: start: 20160722, end: 20160722
  37. HYDRALAZINE [Suspect]
     Active Substance: HYDRALAZINE HYDROCHLORIDE
     Dosage: 30 MG, 5X/DAY
     Route: 048
     Dates: start: 20160724
  38. DIGOXIN. [Concomitant]
     Active Substance: DIGOXIN
     Indication: CARDIAC FAILURE CONGESTIVE
     Dosage: 0.25 MG, 1/2 TAB 1X/DAY
     Route: 048
     Dates: start: 1991, end: 20160105
  39. PLAVIX [Concomitant]
     Active Substance: CLOPIDOGREL BISULFATE
     Indication: CORONARY ARTERY DISEASE
     Dosage: 75 MG, 1X/DAY
     Route: 048
     Dates: start: 20140124
  40. AMIODARONE HYDROCHLORIDE. [Concomitant]
     Active Substance: AMIODARONE HYDROCHLORIDE
     Indication: VENTRICULAR TACHYCARDIA
     Dosage: 200 MG, 1X/DAY
     Route: 048
     Dates: start: 2004
  41. METOPROLOL. [Concomitant]
     Active Substance: METOPROLOL
     Dosage: UNK
  42. ANTI LEG CRAMPS [Concomitant]
     Indication: MUSCLE SPASMS
     Dosage: 1 CAP, 1X/DAY
     Route: 048
     Dates: start: 2012, end: 20160613
  43. FUSID /00032601/ [Concomitant]
     Dosage: 60 MG, DAILY
     Route: 048
     Dates: start: 20160718, end: 20160721
  44. FUSID /00032601/ [Concomitant]
     Dosage: 60 MG, 2X/DAY
     Route: 048
     Dates: start: 20160724

REACTIONS (9)
  - Ventricular tachycardia [Recovered/Resolved]
  - Chest pain [Recovered/Resolved]
  - Angina pectoris [Not Recovered/Not Resolved]
  - Ventricular tachycardia [Recovered/Resolved]
  - Ventricular tachycardia [Not Recovered/Not Resolved]
  - Cardiac failure chronic [Recovered/Resolved]
  - Nausea [Recovered/Resolved]
  - Acute kidney injury [Recovered/Resolved]
  - Asthenia [Recovered/Resolved]

NARRATIVE: CASE EVENT DATE: 20151110
